FAERS Safety Report 21815607 (Version 1)
Quarter: 2023Q1

REPORT INFORMATION
  Report Type: Spontaneous
  Country: US (occurrence: US)
  Receive Date: 20230104
  Receipt Date: 20230104
  Transmission Date: 20230417
  Serious: No
  Sender: FDA-Public Use
  Company Number: US-BRISTOL-MYERS SQUIBB COMPANY-2023-000201

PATIENT
  Sex: Female

DRUGS (1)
  1. REBLOZYL [Suspect]
     Active Substance: LUSPATERCEPT-AAMT
     Indication: Product used for unknown indication
     Dates: start: 20221129

REACTIONS (3)
  - Dyspnoea [Unknown]
  - Chest pain [Unknown]
  - Anaemia [Unknown]

NARRATIVE: CASE EVENT DATE: 20221225
